FAERS Safety Report 8193981-4 (Version None)
Quarter: 2012Q1

REPORT INFORMATION
  Report Type: 
  Country: None (occurrence: None)
  Receive Date: 20120308
  Receipt Date: 20120301
  Transmission Date: 20120608
  Serious: Yes (Hospitalization)
  Sender: FDA-Public Use
  Company Number: US-CELGENEUS-163-21880-12020338

PATIENT
  Sex: Female
  Weight: 73.8 kg

DRUGS (20)
  1. COREG [Concomitant]
     Dosage: 40 MILLIGRAM
     Route: 065
     Dates: end: 20120101
  2. REVLIMID [Suspect]
     Indication: MULTIPLE MYELOMA
     Dosage: 10 MILLIGRAM
     Route: 048
     Dates: start: 20111124
  3. DEXAMETHASONE [Suspect]
     Dosage: 40 MILLIGRAM
     Route: 065
     Dates: end: 20120101
  4. LOSARTAN POTASSIUM [Concomitant]
     Dosage: 40 MILLIGRAM
     Route: 065
     Dates: end: 20120101
  5. RENVELA [Concomitant]
     Route: 065
  6. ASPIRIN [Concomitant]
     Dosage: 81 MILLIGRAM
     Route: 065
  7. CARDIZEM [Concomitant]
     Dosage: 40 MILLIGRAM
     Route: 065
     Dates: end: 20120101
  8. SENSIPAR [Concomitant]
     Route: 065
  9. REVLIMID [Suspect]
     Dosage: 10 MILLIGRAM
     Route: 048
     Dates: end: 20120101
  10. DEXAMETHASONE [Suspect]
     Indication: MULTIPLE MYELOMA
     Dosage: 40 MILLIGRAM
     Route: 065
     Dates: start: 20111124
  11. COREG [Concomitant]
     Route: 065
  12. PERCOCET [Concomitant]
     Dosage: 40 MILLIGRAM
     Route: 065
     Dates: end: 20120101
  13. RENVELA [Concomitant]
     Dosage: 40 MILLIGRAM
     Route: 065
     Dates: end: 20120101
  14. VITAMIN D [Concomitant]
     Route: 065
  15. VITAMIN D [Concomitant]
     Dosage: 40 MILLIGRAM
     Route: 065
     Dates: end: 20120101
  16. LOSARTAN POTASSIUM [Concomitant]
     Route: 065
  17. SENSIPAR [Concomitant]
     Dosage: 40 MILLIGRAM
     Route: 065
     Dates: end: 20120101
  18. CARDIZEM [Concomitant]
     Route: 065
  19. PERCOCET [Concomitant]
     Route: 065
  20. ASPIRIN [Concomitant]
     Dosage: 40 MILLIGRAM
     Route: 065
     Dates: end: 20120101

REACTIONS (1)
  - GASTRIC ULCER PERFORATION [None]
